FAERS Safety Report 11738480 (Version 9)
Quarter: 2019Q3

REPORT INFORMATION
  Report Type: Spontaneous
  Country: US (occurrence: US)
  Receive Date: 20151113
  Receipt Date: 20190702
  Transmission Date: 20191004
  Serious: Yes (Death, Hospitalization, Other)
  Sender: FDA-Public Use
  Company Number: US-DSJP-DSU-2015-135409

PATIENT

DRUGS (9)
  1. BENICAR HCT [Suspect]
     Active Substance: HYDROCHLOROTHIAZIDE\OLMESARTAN MEDOXOMIL
     Dosage: 40/12.5 MG, QD
     Dates: start: 20070402, end: 20140527
  2. HEPARIN [Suspect]
     Active Substance: HEPARIN SODIUM
     Indication: PRODUCT USED FOR UNKNOWN INDICATION
     Dosage: UNK
  3. SYNTHROID [Concomitant]
     Active Substance: LEVOTHYROXINE SODIUM
     Indication: PRODUCT USED FOR UNKNOWN INDICATION
     Dosage: UNK
  4. BENICAR HCT [Suspect]
     Active Substance: HYDROCHLOROTHIAZIDE\OLMESARTAN MEDOXOMIL
     Dosage: UNK
     Dates: start: 2014
  5. PROMETRIUM [Concomitant]
     Active Substance: PROGESTERONE
     Indication: PRODUCT USED FOR UNKNOWN INDICATION
     Dosage: UNK
  6. BENICAR [Suspect]
     Active Substance: OLMESARTAN MEDOXOMIL
     Indication: HYPERTENSION
     Dosage: 20 MG, UNK
     Dates: start: 20070402, end: 20140527
  7. BENICAR HCT [Suspect]
     Active Substance: HYDROCHLOROTHIAZIDE\OLMESARTAN MEDOXOMIL
     Indication: HYPERTENSION
     Dosage: 20/12.5 MG, UNK
     Dates: start: 20070402, end: 20140527
  8. STEROIDS [Suspect]
     Active Substance: UNSPECIFIED INGREDIENT
     Indication: PRODUCT USED FOR UNKNOWN INDICATION
     Dosage: UNK
  9. ESTROGEL [Concomitant]
     Active Substance: ESTRADIOL
     Indication: PRODUCT USED FOR UNKNOWN INDICATION
     Dosage: UNK

REACTIONS (19)
  - Hepatomegaly [Fatal]
  - Haemorrhoids [Fatal]
  - Acute kidney injury [Fatal]
  - Oesophageal polyp [Unknown]
  - Heparin-induced thrombocytopenia [Fatal]
  - Hypotension [Unknown]
  - Drug-induced liver injury [Fatal]
  - Respiratory failure [Fatal]
  - Sepsis [Fatal]
  - Depression [Fatal]
  - Decubitus ulcer [Fatal]
  - Anaemia macrocytic [Unknown]
  - Sprue-like enteropathy [Fatal]
  - Hiatus hernia [Unknown]
  - Bacterial infection [Fatal]
  - Multiple organ dysfunction syndrome [Not Recovered/Not Resolved]
  - Autoimmune enteropathy [Fatal]
  - Pancreatic necrosis [Fatal]
  - Deep vein thrombosis [Fatal]

NARRATIVE: CASE EVENT DATE: 201401
